FAERS Safety Report 5886096-9 (Version None)
Quarter: 2008Q3

REPORT INFORMATION
  Report Type: 
  Country: None (occurrence: None)
  Receive Date: 20080917
  Receipt Date: 20080909
  Transmission Date: 20090109
  Serious: Yes (Hospitalization, Other)
  Sender: FDA-Public Use
  Company Number: CZ-ELI_LILLY_AND_COMPANY-CZ200809002913

PATIENT
  Sex: Female
  Weight: 87 kg

DRUGS (7)
  1. LISPRO 25LIS75NPL [Suspect]
     Indication: TYPE 2 DIABETES MELLITUS
     Dosage: 22 IU, EACH MORNING
     Route: 058
     Dates: start: 20070130
  2. LISPRO 25LIS75NPL [Suspect]
     Dosage: 14 IU, EACH EVENING
     Route: 058
     Dates: start: 20070130
  3. BETAXOLOL [Concomitant]
     Indication: HYPERTENSION
     Dosage: UNK, UNKNOWN
     Route: 048
     Dates: start: 20040101
  4. ASPIRIN [Concomitant]
     Indication: PERIPHERAL ISCHAEMIA
     Dosage: UNK, UNKNOWN
     Route: 048
     Dates: start: 20040101
  5. PENTOXIFYLLINE [Concomitant]
     Indication: PERIPHERAL ISCHAEMIA
     Dosage: UNK, UNKNOWN
     Route: 048
     Dates: start: 20040101
  6. CINNARIZIN [Concomitant]
     Indication: PERIPHERAL ISCHAEMIA
     Dosage: UNK, UNKNOWN
     Route: 048
     Dates: start: 20040101
  7. ATORVASTATIN CALCIUM [Concomitant]
     Indication: HYPERLIPIDAEMIA
     Dosage: UNK, UNKNOWN
     Route: 048
     Dates: start: 20061012

REACTIONS (2)
  - FEMORAL ARTERIAL STENOSIS [None]
  - PERIPHERAL ISCHAEMIA [None]
